FAERS Safety Report 5538173-X (Version None)
Quarter: 2007Q4

REPORT INFORMATION
  Report Type: 
  Country: None (occurrence: None)
  Receive Date: 20071207
  Receipt Date: 20071127
  Transmission Date: 20080405
  Serious: Yes (Death, Life-Threatening, Hospitalization, Other)
  Sender: FDA-Public Use
  Company Number: AR-ABBOTT-07P-007-0422977-00

PATIENT
  Age: 71 Year
  Sex: Female
  Weight: 58 kg

DRUGS (2)
  1. HUMIRA [Suspect]
     Indication: RHEUMATOID ARTHRITIS
     Route: 058
     Dates: start: 20060901, end: 20071001
  2. METHOTREXATE [Concomitant]
     Indication: RHEUMATOID ARTHRITIS
     Route: 030
     Dates: start: 20060901, end: 20071001

REACTIONS (6)
  - CEREBROVASCULAR ACCIDENT [None]
  - COMA [None]
  - HAEMATOCHEZIA [None]
  - HYPOCHROMIC ANAEMIA [None]
  - MALAISE [None]
  - METASTASES TO CENTRAL NERVOUS SYSTEM [None]
